FAERS Safety Report 26149725 (Version 1)
Quarter: 2025Q4

REPORT INFORMATION
  Report Type: Spontaneous
  Country: GB (occurrence: GB)
  Receive Date: 20251212
  Receipt Date: 20251212
  Transmission Date: 20260118
  Serious: Yes (Other)
  Sender: SANOFI AVENTIS
  Company Number: None

PATIENT
  Age: 69 Year
  Sex: Female

DRUGS (14)
  1. ENOXAPARIN SODIUM [Suspect]
     Active Substance: ENOXAPARIN SODIUM
     Dosage: UNK
  2. PREDNISOLONE [Concomitant]
     Active Substance: PREDNISOLONE
     Dosage: 5 MG, QD
  3. DOXYCYCLINE [Concomitant]
     Active Substance: DOXYCYCLINE
     Dosage: 100 MG (TWO TO BE TAKEN ON THE FIRST DAY AND THEN ONE TO BE TAKEN EACH DAY)
  4. Spikevax JN.1 [Concomitant]
     Indication: Immunisation
     Dosage: 0.5 UNK
     Route: 030
  5. ACETAMINOPHEN [Concomitant]
     Active Substance: ACETAMINOPHEN
     Dosage: UNK (TWO TO BE TAKEN EVERY 4-6 HOURS UP TO FOUR TIMES A DAY WHEN REQUIRED AS DISCUSSED, 224 TABLET +
  6. OMEPRAZOLE [Concomitant]
     Active Substance: OMEPRAZOLE
     Dosage: UNK, PRN (100MICROGRAMS/DOSE INHALER CFC FREE (TEVA UK LTD), 2 PUFFS AS DIRECTED )
  7. ATORVASTATIN [Concomitant]
     Active Substance: ATORVASTATIN
     Dosage: UNK (20MG TABLETS, ONE TO BE TAKEN EACH DAY,28 TABLET + MED LIST - VL4)
  8. PREGABALIN [Concomitant]
     Active Substance: PREGABALIN
     Dosage: 75MG CAPSULES, ONE TO BE TAKEN TWICE A DAY,56 CAPSULE + MED LIST - VL14
  9. DESLORATADINE [Concomitant]
     Active Substance: DESLORATADINE
     Dosage: 5MG TABLETS, ONE TO BE TAKEN DAILY,28 TABLET + MED LIST - VL1
  10. FUROSEMIDE [Concomitant]
     Active Substance: FUROSEMIDE
     Dosage: 20MG TABLETS, 40MG TO BE TAKEN IN THE MORNING ,56 TABLET + MED LIST - VL1
  11. Adjuvanted trivalent influenza vaccine [Concomitant]
     Indication: Immunisation
     Dosage: 0.5 ML
     Route: 065
  12. EPILIM [Concomitant]
     Active Substance: VALPROATE SODIUM
     Dosage: TAKE THREE (600MG) IN THE MORNING AND FOUR (800MG) AT NIGHT ,210TABLET - AS PER 11/07/2024 WALTON LE
  13. DERMOL 200 [Concomitant]
     Dosage: APPLY TO THE SKIN OR USE AS A SOAP SUBSTITUTE,400 ML +MED LIST (DERMOL 200 LOTION) + P - USES
  14. DERMOL [Concomitant]
     Active Substance: BENZALKONIUM CHLORIDE\CHLORHEXIDINE HYDROCHLORIDE\ISOPROPYL MYRISTATE\PARAFFIN
     Dosage: APPLY TO SKIN 3 OR 4 TIMES PER DAY OR USE AS A SOAP SUBSTITUTE,500 ML- P - USES BOTH DERMOL 500 AND

REACTIONS (1)
  - Contusion [Recovered/Resolved]
